FAERS Safety Report 4938427-1 (Version None)
Quarter: 2006Q1

REPORT INFORMATION
  Report Type: 
  Country: None (occurrence: None)
  Receive Date: 20060309
  Receipt Date: 20060227
  Transmission Date: 20060701
  Serious: Yes (Hospitalization, Other)
  Sender: FDA-Public Use
  Company Number: US-JNJFOC-20060300097

PATIENT
  Age: 18 Year
  Sex: Male

DRUGS (2)
  1. GRIFULVIN V [Suspect]
     Route: 048
     Dates: start: 20051201, end: 20060224
  2. ASPIRIN [Concomitant]
     Indication: HEADACHE

REACTIONS (12)
  - ABDOMINAL PAIN UPPER [None]
  - AGGRESSION [None]
  - ANOREXIA [None]
  - ANXIETY [None]
  - DIARRHOEA [None]
  - HALLUCINATION, AUDITORY [None]
  - HEADACHE [None]
  - INSOMNIA [None]
  - NERVOUSNESS [None]
  - PARANOIA [None]
  - PHARYNGOLARYNGEAL PAIN [None]
  - SUICIDE ATTEMPT [None]
